FAERS Safety Report 9817109 (Version 2)
Quarter: 2014Q1

REPORT INFORMATION
  Report Type: Spontaneous
  Country: US (occurrence: US)
  Receive Date: 20140114
  Receipt Date: 20140121
  Transmission Date: 20141002
  Serious: Yes (Other)
  Sender: FDA-Public Use
  Company Number: CHPA2014US000717

PATIENT
  Age: 82 Year
  Sex: Female

DRUGS (3)
  1. VOLTAREN GEL [Suspect]
     Indication: PAIN IN EXTREMITY
     Dosage: 4 G, QID
     Route: 061
     Dates: start: 201311
  2. BABY ASPIRIN [Concomitant]
     Dosage: UNK, QD
  3. PLAVIX [Concomitant]

REACTIONS (2)
  - Plantar fasciitis [Unknown]
  - Drug ineffective for unapproved indication [Unknown]
